FAERS Safety Report 10213902 (Version 2)
Quarter: 2014Q2

REPORT INFORMATION
  Report Type: Spontaneous
  Country: BR (occurrence: BR)
  Receive Date: 20140603
  Receipt Date: 20140603
  Transmission Date: 20141212
  Serious: Yes (Other)
  Sender: FDA-Public Use
  Company Number: BR-SA-2014SA060569

PATIENT
  Sex: Male
  Weight: 88 kg

DRUGS (7)
  1. LANTUS [Suspect]
     Indication: TYPE 2 DIABETES MELLITUS
     Route: 058
     Dates: start: 2010
  2. LANTUS [Suspect]
     Indication: TYPE 2 DIABETES MELLITUS
     Dosage: 15 IU IN THE MORNING AND 10 IU AFTER DINNER
     Route: 058
     Dates: start: 2014
  3. LANTUS [Suspect]
     Indication: TYPE 2 DIABETES MELLITUS
     Dosage: DOSE CHANGED
     Route: 058
  4. GLIFAGE [Suspect]
     Indication: PRODUCT USED FOR UNKNOWN INDICATION
     Route: 065
  5. AUTOPEN 24 [Concomitant]
     Indication: DEVICE THERAPY
     Dates: start: 2010
  6. CARDIZEM [Concomitant]
     Indication: HYPERTENSION
     Route: 048
  7. ATENSINA [Concomitant]
     Indication: HYPERTENSION
     Route: 048

REACTIONS (6)
  - Retinal haemorrhage [Unknown]
  - Visual impairment [Recovering/Resolving]
  - Hypoglycaemia [Recovered/Resolved]
  - Dizziness [Recovering/Resolving]
  - Renal disorder [Unknown]
  - Off label use [Unknown]
